FAERS Safety Report 9223858 (Version 1)
Quarter: 2013Q2

REPORT INFORMATION
  Report Type: Spontaneous
  Country: US (occurrence: US)
  Receive Date: 20130411
  Receipt Date: 20130411
  Transmission Date: 20140414
  Serious: Yes (Other)
  Sender: FDA-Public Use
  Company Number: US-AMGEN-USASP2013024796

PATIENT
  Age: 67 Year
  Sex: Female

DRUGS (9)
  1. PROCRIT [Suspect]
     Indication: PRODUCT USED FOR UNKNOWN INDICATION
     Dosage: 15000 UNIT, QWK (EVERY THURSDAY)
     Route: 058
  2. PROCRIT [Suspect]
  3. DURAGESIC /00174601/ [Suspect]
     Dosage: UNK
  4. PRAVACHOL [Concomitant]
     Dosage: UNK
  5. PROTONIX [Concomitant]
     Dosage: UNK
  6. FUROSEMIDE [Concomitant]
     Dosage: 40 MG, UNK
  7. KCL [Concomitant]
     Dosage: 10 MEQ, QD
  8. REGLAN                             /00041901/ [Concomitant]
     Dosage: 5 MG, BID
  9. PROCHLORPERAZINE [Concomitant]
     Indication: NAUSEA
     Dosage: 5 MG, TID (AS NEEDED)

REACTIONS (1)
  - Rehabilitation therapy [Recovered/Resolved]
